FAERS Safety Report 7346099 (Version 2)
Quarter: 2014Q3

REPORT INFORMATION
  Report Type: Spontaneous
  Country: US (occurrence: None)
  Receive Date: 20100319
  Receipt Date: 20140918
  Transmission Date: 20150326
  Serious: No
  Sender: FDA-Public Use
  Company Number: 2010S1001513

PATIENT
  Age: 46 Year
  Sex: Male
  Weight: 117 kg

DRUGS (5)
  1. GLUCOPHAGE (METFORMIN HYDROCHLORIDE) [Concomitant]
  2. DEMADEX (TORASEMIDE) [Concomitant]
  3. PHOSPHO-SODA [Suspect]
     Active Substance: SODIUM PHOSPHATE, DIBASIC\SODIUM PHOSPHATE, MONOBASIC
     Indication: COLONOSCOPY
     Dosage: PO
     Route: 048
     Dates: start: 19981221
  4. ZESTRIL (LISINOPRIL) [Concomitant]
  5. HUMULIN (INSULIN HUMAN, INSULIN HUMAN INJECTION, ISOPHANE) [Concomitant]

REACTIONS (6)
  - Renal failure [None]
  - Hypotension [None]
  - Nephropathy [None]
  - Peritoneal dialysis [None]
  - Renal transplant [None]
  - Renal disorder [None]
